FAERS Safety Report 7054568-X (Version None)
Quarter: 2010Q4

REPORT INFORMATION
  Report Type: 
  Country: None (occurrence: None)
  Receive Date: 20101020
  Receipt Date: 20101007
  Transmission Date: 20110411
  Serious: Yes (Other)
  Sender: FDA-Public Use
  Company Number: US-ELI_LILLY_AND_COMPANY-US201010001946

PATIENT
  Sex: Male

DRUGS (7)
  1. ZYPREXA [Suspect]
     Indication: SCHIZOPHRENIA
     Dosage: 5 MG, DAILY (1/D)
  2. ZYPREXA [Suspect]
     Dosage: 10 MG, DAILY (1/D)
     Dates: start: 20101006
  3. XANAX [Concomitant]
  4. GABAPENTIN [Concomitant]
  5. LITHIUM CARBONATE [Concomitant]
  6. CARISOPRODOL [Concomitant]
  7. ATENOLOL [Concomitant]

REACTIONS (7)
  - BACK PAIN [None]
  - IRRITABILITY [None]
  - MUSCULOSKELETAL PAIN [None]
  - POOR QUALITY SLEEP [None]
  - SOMNAMBULISM [None]
  - SPINAL FRACTURE [None]
  - THINKING ABNORMAL [None]
